FAERS Safety Report 5659472-7 (Version None)
Quarter: 2008Q1

REPORT INFORMATION
  Report Type: 
  Country: None (occurrence: None)
  Receive Date: 20080311
  Receipt Date: 20080304
  Transmission Date: 20080703
  Serious: Yes (Other)
  Sender: FDA-Public Use
  Company Number: PHHY2008JP01082

PATIENT
  Age: 1 Month

DRUGS (3)
  1. MEDROL [Concomitant]
     Dosage: 2 MG/DAY
     Route: 064
  2. IMURAN [Concomitant]
     Dosage: 50 MG
     Route: 064
  3. NEORAL [Suspect]
     Dosage: 100 MG/DAY
     Route: 064

REACTIONS (7)
  - COMPUTERISED TOMOGRAM ABNORMAL [None]
  - CONVULSION NEONATAL [None]
  - DRUG EXPOSURE DURING PREGNANCY [None]
  - EPILEPSY CONGENITAL [None]
  - NERVOUS SYSTEM DISORDER [None]
  - NUCLEAR MAGNETIC RESONANCE IMAGING ABNORMAL [None]
  - STATUS EPILEPTICUS [None]
